FAERS Safety Report 6048894-0 (Version None)
Quarter: 2009Q1

REPORT INFORMATION
  Report Type: 
  Country: None (occurrence: None)
  Receive Date: 20090123
  Receipt Date: 20090119
  Transmission Date: 20090719
  Serious: Yes (Other)
  Sender: FDA-Public Use
  Company Number: US-GILEAD-2008-0019615

PATIENT
  Sex: Female
  Weight: 69.4 kg

DRUGS (5)
  1. LETAIRIS [Suspect]
     Indication: PULMONARY ARTERIAL HYPERTENSION
     Route: 048
     Dates: start: 20080907, end: 20081125
  2. LETAIRIS [Suspect]
     Indication: MIXED CONNECTIVE TISSUE DISEASE
  3. MYCOPHENOLATE MOFETIL [Concomitant]
     Indication: INTERSTITIAL LUNG DISEASE
     Dates: start: 20080610
  4. TYLENOL W/CODEINE #3 [Concomitant]
     Indication: COUGH
     Dates: start: 20080610
  5. TYLENOL W/CODEINE #3 [Concomitant]
     Indication: PAIN

REACTIONS (4)
  - ANTINUCLEAR ANTIBODY POSITIVE [None]
  - FATIGUE [None]
  - PAIN [None]
  - PYREXIA [None]
